FAERS Safety Report 12912875 (Version 2)
Quarter: 2016Q4

REPORT INFORMATION
  Report Type: Spontaneous
  Country: US (occurrence: US)
  Receive Date: 20161104
  Receipt Date: 20161114
  Transmission Date: 20170207
  Serious: Yes (Death)
  Sender: FDA-Public Use
  Company Number: US-CELGENEUS-USA-2016108730

PATIENT
  Age: 17 Year
  Sex: Female

DRUGS (1)
  1. THALOMID [Suspect]
     Active Substance: THALIDOMIDE
     Indication: XANTHOGRANULOMA
     Dosage: 50 MILLIGRAM
     Route: 048
     Dates: start: 201610

REACTIONS (2)
  - Organ failure [Fatal]
  - Xanthogranuloma [Fatal]

NARRATIVE: CASE EVENT DATE: 20161030
